FAERS Safety Report 8787627 (Version 2)
Quarter: 2012Q4

REPORT INFORMATION
  Report Type: 
  Country: US (occurrence: US)
  Receive Date: 20120914
  Receipt Date: 20121010
  Transmission Date: 20130627
  Serious: Yes (Death)
  Sender: FDA-Public Use
  Company Number: US-ROCHE-1126760

PATIENT
  Sex: Male

DRUGS (4)
  1. AVASTIN [Suspect]
     Indication: METASTASES TO LIVER
     Route: 065
     Dates: start: 20080522
  2. AVASTIN [Suspect]
     Indication: PANCREATIC CARCINOMA
     Route: 065
     Dates: start: 20080605
  3. AVASTIN [Suspect]
     Route: 065
     Dates: start: 20080619
  4. AVASTIN [Suspect]
     Route: 065
     Dates: start: 20080703

REACTIONS (1)
  - Death [Fatal]
